FAERS Safety Report 5419160-9 (Version None)
Quarter: 2007Q3

REPORT INFORMATION
  Report Type: 
  Country: None (occurrence: None)
  Receive Date: 20070816
  Receipt Date: 20070816
  Transmission Date: 20080115
  Serious: No
  Sender: FDA-Public Use
  Company Number: None

PATIENT
  Age: 41 Year
  Sex: Female
  Weight: 91 kg

DRUGS (2)
  1. OXYTOCIN [Suspect]
     Indication: LABOUR INDUCTION
     Dosage: 30 UNITS PER 500 ML TITRATED IV DRIP
     Route: 041
     Dates: start: 20070815, end: 20070815
  2. LACTATED RINGER'S [Concomitant]

REACTIONS (2)
  - DRUG EFFECT DECREASED [None]
  - PHARMACEUTICAL PRODUCT COMPLAINT [None]
